FAERS Safety Report 23649365 (Version 1)
Quarter: 2024Q1

REPORT INFORMATION
  Report Type: Report from Study
  Country: TR (occurrence: TR)
  Receive Date: 20240319
  Receipt Date: 20240319
  Transmission Date: 20240410
  Serious: Yes (Other)
  Sender: FDA-Public Use
  Company Number: TR-TEVA-VS-3172076

PATIENT
  Age: 20 Year
  Sex: Female

DRUGS (1)
  1. COPAXONE [Suspect]
     Active Substance: GLATIRAMER ACETATE
     Indication: Multiple sclerosis
     Route: 065
     Dates: start: 20230915

REACTIONS (4)
  - Taste disorder [Unknown]
  - Injection site induration [Unknown]
  - Presyncope [Unknown]
  - Dyspnoea [Unknown]
